FAERS Safety Report 19702286 (Version 1)
Quarter: 2021Q3

REPORT INFORMATION
  Report Type: Spontaneous
  Country: CA (occurrence: CA)
  Receive Date: 20210814
  Receipt Date: 20210814
  Transmission Date: 20211014
  Serious: Yes (Life-Threatening, Hospitalization, Other)
  Sender: FDA-Public Use
  Company Number: CA-TEVA-2021-CA-1940966

PATIENT
  Age: 3 Year
  Sex: Male

DRUGS (4)
  1. ACT LEVOFLOXACIN [Suspect]
     Active Substance: LEVOFLOXACIN
     Route: 065
  2. PENTAMIDINE ISETIONATE FORINJECTION, BP [Suspect]
     Active Substance: PENTAMIDINE ISETHIONATE
     Indication: ANTIFUNGAL PROPHYLAXIS
     Route: 065
  3. LEVOFLOXACIN. [Concomitant]
     Active Substance: LEVOFLOXACIN
  4. KYMRIAH [Concomitant]
     Active Substance: TISAGENLECLEUCEL

REACTIONS (8)
  - Depressed level of consciousness [Unknown]
  - Hyperglycaemia [Unknown]
  - Polydipsia [Unknown]
  - Polyuria [Unknown]
  - Ketosis [Unknown]
  - Hypotension [Unknown]
  - Metabolic acidosis [Unknown]
  - Glycosuria [Unknown]
